FAERS Safety Report 10589173 (Version 2)
Quarter: 2015Q2

REPORT INFORMATION
  Report Type: Report from Study
  Country: ID (occurrence: ID)
  Receive Date: 20141118
  Receipt Date: 20150512
  Transmission Date: 20150821
  Serious: Yes (Other)
  Sender: FDA-Public Use
  Company Number: ID-ROCHE-1491235

PATIENT
  Age: 52 Year
  Sex: Female

DRUGS (1)
  1. AVASTIN [Suspect]
     Active Substance: BEVACIZUMAB
     Indication: COLORECTAL CANCER
     Dosage: CYCLE 22 ON 1/APR/2015 THEN CYCLE 23 : 22APR/2015
     Route: 065

REACTIONS (6)
  - General physical health deterioration [Unknown]
  - Haemorrhage [Unknown]
  - Skin exfoliation [Unknown]
  - Blister [Unknown]
  - Drug ineffective [Unknown]
  - Carcinoembryonic antigen increased [Unknown]

NARRATIVE: CASE EVENT DATE: 20141031
